FAERS Safety Report 5722807-0 (Version None)
Quarter: 2008Q2

REPORT INFORMATION
  Report Type: 
  Country: None (occurrence: None)
  Receive Date: 20080429
  Receipt Date: 20080125
  Transmission Date: 20081010
  Serious: No
  Sender: FDA-Public Use
  Company Number: US-ASTRAZENECA-2008UW01897

PATIENT
  Age: 72 Year
  Sex: Female

DRUGS (1)
  1. NEXIUM [Suspect]
     Route: 048
     Dates: end: 20080104

REACTIONS (4)
  - BREATH ODOUR [None]
  - MALAISE [None]
  - STOMACH DISCOMFORT [None]
  - THROAT IRRITATION [None]
